FAERS Safety Report 4562173-X (Version None)
Quarter: 2005Q1

REPORT INFORMATION
  Report Type: 
  Country: None (occurrence: None)
  Receive Date: 20050121
  Receipt Date: 20050107
  Transmission Date: 20050727
  Serious: Yes (Other)
  Sender: FDA-Public Use
  Company Number: HQWYE964018MAR04

PATIENT
  Age: 18 Year
  Sex: Male
  Weight: 72.64 kg

DRUGS (5)
  1. EFFEXOR XR [Suspect]
     Indication: MAJOR DEPRESSION
     Dosage: 75 MG 1X PER 1 DAY, ORAL
     Route: 048
     Dates: start: 20000715
  2. CIPRO [Suspect]
     Indication: URINARY TRACT INFECTION
  3. DURICEF [Suspect]
     Indication: PROPHYLAXIS
  4. FLAGYL [Suspect]
     Indication: CLOSTRIDIUM COLITIS
  5. FLAGYL [Suspect]
     Indication: PROPHYLAXIS

REACTIONS (14)
  - ABNORMAL BEHAVIOUR [None]
  - AGITATION [None]
  - CLOSTRIDIAL INFECTION [None]
  - CONDITION AGGRAVATED [None]
  - DELIRIUM [None]
  - DEPRESSION [None]
  - DISEASE RECURRENCE [None]
  - DRUG INTERACTION [None]
  - FEELING OF DESPAIR [None]
  - NEUROTOXICITY [None]
  - POST PROCEDURAL COMPLICATION [None]
  - SUICIDE ATTEMPT [None]
  - UNEVALUABLE EVENT [None]
  - URINARY TRACT INFECTION [None]
